FAERS Safety Report 7500133-7 (Version None)
Quarter: 2011Q2

REPORT INFORMATION
  Report Type: 
  Country: None (occurrence: None)
  Receive Date: 20110524
  Receipt Date: 20110518
  Transmission Date: 20111010
  Serious: Yes (Hospitalization)
  Sender: FDA-Public Use
  Company Number: JP-B.I. PHARMACEUTICALS,INC./RIDGEFIELD-2011-BP-11586NB

PATIENT
  Age: 86 Year
  Sex: Male

DRUGS (2)
  1. FUROSEMIDE [Concomitant]
     Indication: CARDIAC FAILURE
     Dosage: 40 MG
     Route: 048
  2. PRADAXA [Suspect]
     Indication: ATRIAL FIBRILLATION
     Dosage: 110 MG
     Route: 048
     Dates: start: 20110319, end: 20110404

REACTIONS (4)
  - CONVULSION [None]
  - MELAENA [None]
  - GASTRIC HAEMORRHAGE [None]
  - EPILEPSY [None]
